FAERS Safety Report 12428539 (Version 1)
Quarter: 2016Q2

REPORT INFORMATION
  Report Type: Spontaneous
  Country: US (occurrence: US)
  Receive Date: 20160602
  Receipt Date: 20160602
  Transmission Date: 20160815
  Serious: No
  Sender: FDA-Public Use
  Company Number: US-BAUSCH-BL-2015-028137

PATIENT
  Age: 67 Year
  Sex: Female
  Weight: 61.29 kg

DRUGS (5)
  1. ELIDEL [Suspect]
     Active Substance: PIMECROLIMUS
     Indication: PERIORBITAL DISORDER
     Dosage: APPLIED ONCE
     Route: 061
     Dates: start: 20151120, end: 20151120
  2. COQ10 [Concomitant]
     Active Substance: UBIDECARENONE
     Indication: PROPHYLAXIS
     Route: 048
     Dates: start: 2012
  3. SIMVASTATIN. [Concomitant]
     Active Substance: SIMVASTATIN
     Indication: BLOOD CHOLESTEROL INCREASED
     Route: 048
     Dates: start: 2008
  4. CHROMIUM PICOLINATE [Concomitant]
     Active Substance: CHROMIUM PICOLINATE
     Indication: BLOOD GLUCOSE DECREASED
     Route: 048
     Dates: start: 2013
  5. ATENOLOL. [Concomitant]
     Active Substance: ATENOLOL
     Indication: HYPERTENSION
     Route: 048
     Dates: start: 2008

REACTIONS (6)
  - Burning sensation [Recovering/Resolving]
  - Hypersensitivity [Not Recovered/Not Resolved]
  - Lacrimation increased [Unknown]
  - Erythema [Recovering/Resolving]
  - Eye irritation [Recovering/Resolving]
  - Vision blurred [Unknown]

NARRATIVE: CASE EVENT DATE: 20151120
